FAERS Safety Report 4876403-8 (Version None)
Quarter: 2005Q4

REPORT INFORMATION
  Report Type: 
  Country: None (occurrence: None)
  Receive Date: 20051206
  Receipt Date: 20051017
  Transmission Date: 20060501
  Serious: No
  Sender: FDA-Public Use
  Company Number: USA0510111149

PATIENT
  Age: 41 Year
  Sex: Female

DRUGS (2)
  1. CYMBALTA [Suspect]
     Indication: ABDOMINAL PAIN
     Dosage: 60 MG DAY
     Dates: start: 20050101, end: 20051001
  2. WELLBUTRIN [Concomitant]

REACTIONS (2)
  - EYE MOVEMENT DISORDER [None]
  - FEELING ABNORMAL [None]
